FAERS Safety Report 4767313-5 (Version None)
Quarter: 2005Q3

REPORT INFORMATION
  Report Type: 
  Country: None (occurrence: None)
  Receive Date: 20050913
  Receipt Date: 20050901
  Transmission Date: 20060218
  Serious: Yes (Disabling)
  Sender: FDA-Public Use
  Company Number: GB-GLAXOSMITHKLINE-B0392615A

PATIENT
  Age: 76 Year
  Sex: Female
  Weight: 86 kg

DRUGS (8)
  1. AVANDIA [Suspect]
     Dosage: 4MG PER DAY
     Route: 048
     Dates: start: 20050801, end: 20050815
  2. METFORMIN [Concomitant]
     Dosage: 850MG THREE TIMES PER DAY
     Route: 048
     Dates: start: 20050401
  3. LANSOPRAZOLE [Concomitant]
     Indication: GASTRITIS
     Dosage: 30MG PER DAY
     Route: 048
     Dates: start: 20050401
  4. IMDUR [Concomitant]
     Dosage: 90MG PER DAY
     Route: 048
     Dates: start: 19980101
  5. ATORVASTATIN CALCIUM [Concomitant]
     Dosage: 10MG PER DAY
     Route: 048
     Dates: start: 20050401
  6. FUROSEMIDE [Concomitant]
     Dosage: 40MG PER DAY
     Route: 048
     Dates: start: 20050401
  7. ASPIRIN [Concomitant]
     Dosage: 75MG PER DAY
     Route: 048
     Dates: start: 19980101
  8. FERROGRAD [Concomitant]
     Dosage: 75MG PER DAY
     Route: 048
     Dates: start: 20050401

REACTIONS (4)
  - ARTHRITIS [None]
  - JOINT SWELLING [None]
  - MUSCULOSKELETAL STIFFNESS [None]
  - PAIN [None]
